FAERS Safety Report 9259104 (Version 1)
Quarter: 2013Q2

REPORT INFORMATION
  Report Type: Spontaneous
  Country: CO (occurrence: CO)
  Receive Date: 20130426
  Receipt Date: 20130426
  Transmission Date: 20140414
  Serious: Yes (Hospitalization)
  Sender: FDA-Public Use
  Company Number: CO-PFIZER INC-2013128097

PATIENT
  Age: 8 Year
  Sex: Male

DRUGS (6)
  1. GENOTROPIN [Suspect]
     Indication: GROWTH HORMONE DEFICIENCY
     Dosage: 0.8 MG, 1X/DAY
     Route: 058
     Dates: start: 20130323
  2. MONTELUKAST [Concomitant]
     Indication: ASTHMA
     Dosage: 4 MG, 1X/DAY
     Route: 048
     Dates: start: 2008
  3. BUDESONIDE [Concomitant]
     Indication: ASTHMA
     Dosage: 2 DF, 2 PUFF 1X/DAY
     Route: 055
     Dates: start: 2009
  4. SERETIDE [Concomitant]
     Indication: ASTHMA
     Dosage: 2 DF, 2 PUFF 1X/DAY
     Route: 055
     Dates: start: 201303
  5. VENTILAN [Concomitant]
     Indication: ASTHMA
     Dosage: UNK
     Route: 048
  6. SALBUTAMOL [Concomitant]
     Indication: ASTHMA
     Dosage: UNK
     Route: 048

REACTIONS (2)
  - Bronchitis [Not Recovered/Not Resolved]
  - Pneumonia [Not Recovered/Not Resolved]
